FAERS Safety Report 6347312-2 (Version None)
Quarter: 2009Q3

REPORT INFORMATION
  Report Type: 
  Country: None (occurrence: None)
  Receive Date: 20090910
  Receipt Date: 20090901
  Transmission Date: 20100115
  Serious: Yes (Death)
  Sender: FDA-Public Use
  Company Number: IL-NOVOPROD-291264

PATIENT
  Age: 21 Year
  Sex: Male

DRUGS (2)
  1. NOVOSEVEN [Suspect]
     Indication: HAEMORRHAGE
  2. BLOOD CELLS, PACKED HUMAN [Concomitant]
     Dosage: 30 U, UNK

REACTIONS (1)
  - DEATH [None]
